FAERS Safety Report 8485181-5 (Version None)
Quarter: 2012Q3

REPORT INFORMATION
  Report Type: 
  Country: None (occurrence: None)
  Receive Date: 20120703
  Receipt Date: 20120625
  Transmission Date: 20120928
  Serious: Yes (Hospitalization)
  Sender: FDA-Public Use
  Company Number: US-BAYER-201013941NA

PATIENT
  Age: 34 Year
  Sex: Female

DRUGS (4)
  1. AZITHROMYCIN [Concomitant]
     Dosage: 250 MG, UNK
     Route: 048
  2. ZITHROMAX [Concomitant]
  3. YAZ [Suspect]
     Dosage: FREQUENCY: CONTINUOUS
     Route: 048
     Dates: start: 20070601, end: 20080401
  4. SYNTHROID [Concomitant]
     Indication: HYPOTHYROIDISM

REACTIONS (2)
  - DEEP VEIN THROMBOSIS [None]
  - PULMONARY EMBOLISM [None]
